FAERS Safety Report 18963181 (Version 1)
Quarter: 2021Q1

REPORT INFORMATION
  Report Type: Spontaneous
  Country: US (occurrence: US)
  Receive Date: 20210303
  Receipt Date: 20210303
  Transmission Date: 20210420
  Serious: Yes (Death)
  Sender: FDA-Public Use
  Company Number: None

PATIENT
  Age: 95 Year
  Sex: Female

DRUGS (6)
  1. AMIODARONE 200MG [Concomitant]
     Active Substance: AMIODARONE
  2. OMEPRAZOLE 40MG [Concomitant]
     Active Substance: OMEPRAZOLE
  3. ATORVASTATIN 20MG [Concomitant]
     Active Substance: ATORVASTATIN
  4. AMLODIPINE BESYLATE 5MG [Concomitant]
     Active Substance: AMLODIPINE BESYLATE
  5. LEVOTHYROXINE 50MCG [Concomitant]
     Active Substance: LEVOTHYROXINE
  6. CAPECITABINE. [Suspect]
     Active Substance: CAPECITABINE
     Indication: GASTRIC CANCER
     Route: 048
     Dates: start: 20210216

REACTIONS (1)
  - Disease progression [None]

NARRATIVE: CASE EVENT DATE: 20210301
